FAERS Safety Report 15323312 (Version 1)
Quarter: 2018Q3

REPORT INFORMATION
  Report Type: Spontaneous
  Country: US (occurrence: US)
  Receive Date: 20180827
  Receipt Date: 20180827
  Transmission Date: 20181010
  Serious: Yes (Hospitalization)
  Sender: FDA-Public Use
  Company Number: US-ACTELION-A-US2018-175134

PATIENT
  Age: 60 Year
  Sex: Female

DRUGS (7)
  1. OPSUMIT [Suspect]
     Active Substance: MACITENTAN
     Indication: PULMONARY ARTERIAL HYPERTENSION
     Dosage: 10 MG, QD
     Route: 048
     Dates: start: 20180501
  2. COREG [Concomitant]
     Active Substance: CARVEDILOL
  3. SIMVASTATIN. [Concomitant]
     Active Substance: SIMVASTATIN
  4. NORVASC [Concomitant]
     Active Substance: AMLODIPINE BESYLATE
  5. ADEMPAS [Concomitant]
     Active Substance: RIOCIGUAT
  6. VALSARTAN. [Concomitant]
     Active Substance: VALSARTAN
  7. LASIX [Concomitant]
     Active Substance: FUROSEMIDE

REACTIONS (4)
  - Dyspnoea [Recovered/Resolved]
  - Heart rate increased [Recovered/Resolved]
  - Nasal congestion [Unknown]
  - Palpitations [Recovered/Resolved]
